FAERS Safety Report 26059881 (Version 2)
Quarter: 2025Q4

REPORT INFORMATION
  Report Type: Spontaneous
  Country: TR (occurrence: TR)
  Receive Date: 20251118
  Receipt Date: 20251122
  Transmission Date: 20260118
  Serious: Yes (Death, Life-Threatening, Hospitalization, Other)
  Sender: SANOFI AVENTIS
  Company Number: TR-SA-2017SA097027

PATIENT
  Age: 54 Year
  Sex: Male

DRUGS (16)
  1. PREDNISOLONE [Suspect]
     Active Substance: PREDNISOLONE
     Indication: Face injury
     Dosage: 100 MG, QD
     Dates: start: 20130823
  2. PREDNISOLONE [Suspect]
     Active Substance: PREDNISOLONE
     Indication: Squamous cell carcinoma
     Dosage: 20 MG,QD 1 WEEK POSTOPERATIVELY
  3. PREDNISOLONE [Suspect]
     Active Substance: PREDNISOLONE
     Dosage: 6 MG, QD 6 MONTHS POSTOPERATIVELY
     Dates: start: 2014
  4. PREDNISOLONE [Suspect]
     Active Substance: PREDNISOLONE
     Dosage: UNK (R-CHOP REGIMEN)
  5. CYCLOPHOSPHAMIDE [Suspect]
     Active Substance: CYCLOPHOSPHAMIDE
     Indication: Squamous cell carcinoma
     Dosage: UNK
  6. VINCRISTINE SULFATE [Suspect]
     Active Substance: VINCRISTINE SULFATE
     Indication: Squamous cell carcinoma
     Dosage: UNK
  7. MYCOPHENOLATE MOFETIL [Suspect]
     Active Substance: MYCOPHENOLATE MOFETIL
     Indication: Face injury
     Dosage: 2 G,QD
     Dates: start: 2013
  8. DOXORUBICIN [Suspect]
     Active Substance: DOXORUBICIN
     Indication: Squamous cell carcinoma
     Dosage: UNK
  9. PROGRAF [Suspect]
     Active Substance: TACROLIMUS
     Indication: Face injury
     Dosage: 0.2 MG/KG, QD
     Dates: start: 20130823
  10. PROGRAF [Suspect]
     Active Substance: TACROLIMUS
     Indication: Skin graft rejection
  11. RITUXIMAB [Suspect]
     Active Substance: RITUXIMAB
     Indication: Squamous cell carcinoma
     Dosage: UNK
  12. LAPINE T-LYMPHOCYTE IMMUNE GLOBULIN [Concomitant]
     Active Substance: LAPINE T-LYMPHOCYTE IMMUNE GLOBULIN
     Indication: Face injury
     Dosage: 2.5 MG/KG, QD
     Dates: start: 20130823
  13. PYRIMETHAMINE\SULFADOXINE [Concomitant]
     Active Substance: PYRIMETHAMINE\SULFADOXINE
     Indication: Pneumocystis jirovecii pneumonia
     Dosage: UNK
     Dates: start: 2013
  14. VALACYCLOVIR HYDROCHLORIDE [Concomitant]
     Active Substance: VALACYCLOVIR HYDROCHLORIDE
     Indication: Antiviral prophylaxis
     Dosage: UNK
     Route: 048
     Dates: start: 2013
  15. NYSTATIN [Concomitant]
     Active Substance: NYSTATIN
     Indication: Antifungal prophylaxis
     Dosage: UNK
     Route: 048
     Dates: start: 2013
  16. HEPARIN [Concomitant]
     Active Substance: HEPARIN SODIUM
     Indication: Prophylaxis
     Dosage: UNK
     Route: 058
     Dates: start: 2013

REACTIONS (4)
  - Bronchopulmonary aspergillosis [Fatal]
  - Cerebral aspergillosis [Fatal]
  - Pneumonia viral [Fatal]
  - Oral herpes [Fatal]
